APPROVED DRUG PRODUCT: NABUMETONE
Active Ingredient: NABUMETONE
Strength: 750MG
Dosage Form/Route: TABLET;ORAL
Application: A079093 | Product #002
Applicant: OXFORD PHARMACEUTICALS LLC
Approved: Feb 27, 2009 | RLD: No | RS: No | Type: DISCN